FAERS Safety Report 9039578 (Version 1)
Quarter: 2013Q1

REPORT INFORMATION
  Report Type: Report from Study
  Country: US (occurrence: US)
  Receive Date: 20130129
  Receipt Date: 20130129
  Transmission Date: 20140127
  Serious: No
  Sender: FDA-Public Use
  Company Number: US-ABBOTT-12P-163-0939422-00

PATIENT
  Age: 40 Year
  Sex: Female

DRUGS (5)
  1. HUMIRA 40 MG/ 0.8 ML PRE-FILLED SYRINGE [Suspect]
     Indication: PSORIATIC ARTHROPATHY
     Dosage: INITIAL DOSE
     Dates: start: 20120523
  2. NAPROXEN [Concomitant]
     Indication: PAIN
     Dosage: 1000MG DAILY
  3. VESICARE [Concomitant]
     Indication: HYPERTONIC BLADDER
     Dosage: 10MG DAILY
  4. UNSPECIFIED INGREDIENT [Concomitant]
     Indication: PREMENSTRUAL SYNDROME
     Dosage: 20MG DAILY
  5. VITAMINS [Concomitant]
     Indication: PRODUCT USED FOR UNKNOWN INDICATION
     Dosage: DAILY

REACTIONS (2)
  - Injection site warmth [Recovered/Resolved]
  - Injury associated with device [Recovered/Resolved]
